FAERS Safety Report 16192571 (Version 6)
Quarter: 2020Q3

REPORT INFORMATION
  Report Type: Spontaneous
  Country: US (occurrence: US)
  Receive Date: 20190412
  Receipt Date: 20200907
  Transmission Date: 20201102
  Serious: Yes (Other)
  Sender: FDA-Public Use
  Company Number: US-SA-2019SA101793

PATIENT

DRUGS (1)
  1. AUBAGIO [Suspect]
     Active Substance: TERIFLUNOMIDE
     Indication: MULTIPLE SCLEROSIS
     Dosage: 14 MG, QD
     Route: 048
     Dates: start: 20180730

REACTIONS (16)
  - Depression [Not Recovered/Not Resolved]
  - Anxiety [Not Recovered/Not Resolved]
  - Blood glucose increased [Unknown]
  - Blood viscosity decreased [Unknown]
  - Atrioventricular block [Unknown]
  - Hypoacusis [Unknown]
  - Amnesia [Unknown]
  - Carpal tunnel syndrome [Unknown]
  - Loss of consciousness [Unknown]
  - Multiple sclerosis relapse [Unknown]
  - Rhinorrhoea [Unknown]
  - Product dose omission issue [Unknown]
  - Back pain [Unknown]
  - Sleep disorder [Unknown]
  - Post-traumatic stress disorder [Not Recovered/Not Resolved]
  - Hyperglycaemia [Unknown]
